FAERS Safety Report 5863143-1 (Version None)
Quarter: 2008Q3

REPORT INFORMATION
  Report Type: 
  Country: None (occurrence: None)
  Receive Date: 20080818
  Receipt Date: 20080623
  Transmission Date: 20090109
  Serious: No
  Sender: FDA-Public Use
  Company Number: WAES 0806USA08263

PATIENT
  Age: 72 Year
  Sex: Male

DRUGS (7)
  1. JANUVIA [Suspect]
     Indication: TYPE 2 DIABETES MELLITUS
     Dosage: 100 MG/DAILY/PO
     Route: 048
     Dates: start: 20070301
  2. NORVASC [Concomitant]
  3. ZANTAC [Concomitant]
  4. CRANBERRY [Concomitant]
  5. GLUCOSAMINE [Concomitant]
  6. VITAMIN COMPLEX (+) VITAMIN E [Concomitant]
  7. VITAMIN D (UNSPECIFIED) [Concomitant]

REACTIONS (2)
  - PSYCHOMOTOR HYPERACTIVITY [None]
  - SOMNOLENCE [None]
